FAERS Safety Report 7827510-9 (Version None)
Quarter: 2011Q4

REPORT INFORMATION
  Report Type: 
  Country: None (occurrence: None)
  Receive Date: 20111020
  Receipt Date: 20111005
  Transmission Date: 20120403
  Serious: Yes (Other)
  Sender: FDA-Public Use
  Company Number: PHHY2011BR89011

PATIENT
  Sex: Male
  Weight: 2.7 kg

DRUGS (1)
  1. METHERGINE [Suspect]
     Dosage: 1 DF, QD
     Route: 064
     Dates: start: 20100701

REACTIONS (2)
  - MATERNAL EXPOSURE DURING PREGNANCY [None]
  - PREMATURE BABY [None]
